FAERS Safety Report 6096099-X (Version None)
Quarter: 2009Q1

REPORT INFORMATION
  Report Type: 
  Country: None (occurrence: None)
  Receive Date: 20090227
  Receipt Date: 20080903
  Transmission Date: 20090719
  Serious: No
  Sender: FDA-Public Use
  Company Number: A0745668A

PATIENT
  Age: 46 Year
  Sex: Female

DRUGS (4)
  1. LAMICTAL [Suspect]
     Indication: BIPOLAR DISORDER
     Dosage: 25MG PER DAY
     Route: 048
     Dates: start: 20080801
  2. KLONOPIN [Concomitant]
  3. MULTI-VITAMIN [Concomitant]
  4. CALCIUM+VITAMIN D [Concomitant]

REACTIONS (2)
  - PRURITUS [None]
  - URTICARIA [None]
